FAERS Safety Report 15250316 (Version 1)
Quarter: 2018Q3

REPORT INFORMATION
  Report Type: Spontaneous
  Country: AU (occurrence: AU)
  Receive Date: 20180807
  Receipt Date: 20180807
  Transmission Date: 20181010
  Serious: Yes (Death, Other)
  Sender: FDA-Public Use
  Company Number: AU-MYLANLABS-2018M1059123

PATIENT
  Age: 6 Decade
  Sex: Female

DRUGS (6)
  1. CYCLOPHOSPHAMIDE. [Suspect]
     Active Substance: CYCLOPHOSPHAMIDE
     Indication: CHRONIC LYMPHOCYTIC LEUKAEMIA
     Dosage: THE THERAPY WAS STOPPED AFTER ACHIEVING A COMPLETE REMISSION; LATER, THE THERAPY WAS RECOMMENCED ...
     Route: 065
  2. NAVITOCLAX [Suspect]
     Active Substance: NAVITOCLAX
     Indication: CHRONIC LYMPHOCYTIC LEUKAEMIA
     Route: 065
  3. ALEMTUZUMAB [Suspect]
     Active Substance: ALEMTUZUMAB
     Indication: PROPHYLAXIS AGAINST GRAFT VERSUS HOST DISEASE
     Dosage: 10 MG DAILY FOR 4 DOSES; LATER, THE DOSE WAS REDUCED OVER A PERIOD OF 4 MONTHS
     Route: 065
  4. FLUDARABINE [Suspect]
     Active Substance: FLUDARABINE PHOSPHATE
     Indication: CHRONIC LYMPHOCYTIC LEUKAEMIA
     Dosage: THE THERAPY WAS STOPPED AFTER ACHIEVING A COMPLETE REMISSION; LATER, THE THERAPY WAS RECOMMENCED ...
     Route: 065
  5. CICLOSPORIN [Suspect]
     Active Substance: CYCLOSPORINE
     Indication: PROPHYLAXIS AGAINST GRAFT VERSUS HOST DISEASE
     Dosage: DOSE WAS REDUCED OVER A PERIOD OF 4 MONTHS
     Route: 065
  6. RITUXIMAB. [Suspect]
     Active Substance: RITUXIMAB
     Indication: CHRONIC LYMPHOCYTIC LEUKAEMIA
     Dosage: THE THERAPY WAS STOPPED AFTER ACHIEVING A COMPLETE REMISSION; LATER, THE THERAPY WAS RECOMMENCED ...
     Route: 065

REACTIONS (3)
  - Thrombocytopenia [Unknown]
  - Metastatic malignant melanoma [Fatal]
  - Melanoma recurrent [Fatal]

NARRATIVE: CASE EVENT DATE: 201101
